FAERS Safety Report 7278321-7 (Version None)
Quarter: 2011Q1

REPORT INFORMATION
  Report Type: 
  Country: None (occurrence: None)
  Receive Date: 20110207
  Receipt Date: 20110202
  Transmission Date: 20110831
  Serious: Yes (Hospitalization)
  Sender: FDA-Public Use
  Company Number: US-B.I. PHARMACEUTICALS,INC./RIDGEFIELD-2011-BP-01925BP

PATIENT
  Sex: Female

DRUGS (2)
  1. PRADAXA [Suspect]
     Indication: ATRIAL FIBRILLATION
     Dosage: 300 MG
     Route: 048
  2. RADIOACTIVE IODINE [Concomitant]
     Indication: HYPERTHYROIDISM

REACTIONS (3)
  - PROTHROMBIN TIME PROLONGED [None]
  - SWELLING FACE [None]
  - INTERNATIONAL NORMALISED RATIO INCREASED [None]
